FAERS Safety Report 5732361-5 (Version None)
Quarter: 2008Q2

REPORT INFORMATION
  Report Type: 
  Country: None (occurrence: None)
  Receive Date: 20080508
  Receipt Date: 20080505
  Transmission Date: 20081010
  Serious: Yes (Hospitalization)
  Sender: FDA-Public Use
  Company Number: US-BOEHRINGER INGELHEIM GMBH, GERMANY-2008-DE-02664GD

PATIENT
  Age: 42 Year
  Sex: Male

DRUGS (8)
  1. CLONIDINE [Suspect]
     Indication: AGITATION
  2. MORPHINE SULFATE [Suspect]
     Indication: AGITATION
     Dosage: UP TO 24 MG
  3. FENTANYL-100 [Suspect]
     Indication: AGITATION
     Dosage: 25 - 100 MCG/HOUR
     Route: 042
  4. HALOPERIDOL [Suspect]
     Indication: AGITATION
     Dosage: UP TO 20 MG
     Route: 042
  5. LORAZEPAM [Suspect]
     Indication: AGITATION
     Dosage: 1 MG/HOUR
     Route: 042
  6. PROMETHAZINE [Suspect]
     Indication: AGITATION
     Dosage: UP TO 100 MG
     Route: 042
  7. PHENYTOIN [Concomitant]
     Indication: CONVULSION PROPHYLAXIS
  8. GABAPENTIN [Concomitant]
     Indication: CONVULSION PROPHYLAXIS

REACTIONS (2)
  - MANIA [None]
  - SEDATION [None]
